FAERS Safety Report 13851610 (Version 2)
Quarter: 2017Q3

REPORT INFORMATION
  Report Type: Spontaneous
  Country: JP (occurrence: JP)
  Receive Date: 20170810
  Receipt Date: 20170907
  Transmission Date: 20171127
  Serious: Yes (Other)
  Sender: FDA-Public Use
  Company Number: JP-TAKEDA-2017TJP016816

PATIENT
  Age: 65 Year
  Sex: Female

DRUGS (4)
  1. BASEN                              /01290601/ [Concomitant]
     Active Substance: VOGLIBOSE
     Dosage: UNK
     Route: 048
  2. METGLUCO [Concomitant]
     Active Substance: METFORMIN HYDROCHLORIDE
     Dosage: UNK
     Route: 048
  3. NESINA [Suspect]
     Active Substance: ALOGLIPTIN BENZOATE
     Indication: BLOOD GLUCOSE ABNORMAL
     Dosage: 25 MG, QD
     Route: 048
     Dates: end: 201605
  4. GLIMEPIRIDE. [Concomitant]
     Active Substance: GLIMEPIRIDE
     Dosage: UNK
     Route: 048

REACTIONS (1)
  - Mediastinum neoplasm [Unknown]

NARRATIVE: CASE EVENT DATE: 201605
